FAERS Safety Report 10898850 (Version 2)
Quarter: 2015Q1

REPORT INFORMATION
  Report Type: Report from Study
  Country: US (occurrence: US)
  Receive Date: 20150309
  Receipt Date: 20150311
  Transmission Date: 20150721
  Serious: Yes (Hospitalization)
  Sender: FDA-Public Use
  Company Number: US-VERTEX PHARMACEUTICALS-2015-000654

PATIENT
  Age: 8 Year
  Sex: Female

DRUGS (7)
  1. IVACAFTOR [Suspect]
     Active Substance: IVACAFTOR
     Indication: CYSTIC FIBROSIS
     Dosage: 150 MG, BID
     Route: 048
     Dates: start: 20140424, end: 201411
  2. CREON [Concomitant]
     Active Substance: PANCRELIPASE AMYLASE\PANCRELIPASE LIPASE\PANCRELIPASE PROTEASE
  3. VITAMIN D [Concomitant]
     Active Substance: CHOLECALCIFEROL
  4. DULERA [Concomitant]
     Active Substance: FORMOTEROL FUMARATE DIHYDRATE\MOMETASONE FUROATE
  5. ALBUTEROL. [Concomitant]
     Active Substance: ALBUTEROL
  6. PULMOZYME [Concomitant]
     Active Substance: DORNASE ALFA
  7. VITAMINS [Concomitant]
     Active Substance: VITAMINS

REACTIONS (2)
  - Drug dose omission [Unknown]
  - Infective pulmonary exacerbation of cystic fibrosis [Unknown]

NARRATIVE: CASE EVENT DATE: 20150216
